FAERS Safety Report 7575269-5 (Version None)
Quarter: 2011Q2

REPORT INFORMATION
  Report Type: 
  Country: None (occurrence: None)
  Receive Date: 20110627
  Receipt Date: 20110622
  Transmission Date: 20111010
  Serious: Yes (Congenital Anomaly)
  Sender: FDA-Public Use
  Company Number: US-PFIZER INC-2011115256

PATIENT
  Sex: Female
  Weight: 3.492 kg

DRUGS (6)
  1. PRENATAL VITAMINS [Concomitant]
     Indication: PREGNANCY
     Dosage: UNK
     Route: 064
     Dates: start: 20100201
  2. ZOLOFT [Suspect]
     Indication: DEPRESSION
     Dosage: 100 MG, 1X/DAY
     Route: 064
  3. IRON [Concomitant]
     Dosage: UNK
     Route: 064
  4. ZOLOFT [Suspect]
     Indication: ANXIETY
     Dosage: 25 MG, DAILY
     Route: 064
  5. ZOLOFT [Suspect]
     Dosage: 50 MG, 1X/DAY
     Route: 064
     Dates: start: 20100101
  6. VALTREX [Concomitant]
     Indication: HERPES SIMPLEX
     Dosage: 500 MG, 2X/DAY
     Route: 064
     Dates: start: 20100920, end: 20100924

REACTIONS (4)
  - CARDIAC DISORDER [None]
  - FALLOT'S TETRALOGY [None]
  - DRUG EXPOSURE DURING PREGNANCY [None]
  - MATERNAL DRUGS AFFECTING FOETUS [None]
